FAERS Safety Report 19389318 (Version 2)
Quarter: 2021Q3

REPORT INFORMATION
  Report Type: Spontaneous
  Country: US (occurrence: US)
  Receive Date: 20210608
  Receipt Date: 20210806
  Transmission Date: 20211014
  Serious: No
  Sender: FDA-Public Use
  Company Number: NVSC2021US125403

PATIENT
  Sex: Female

DRUGS (1)
  1. LATANOPROST. [Suspect]
     Active Substance: LATANOPROST
     Indication: PRODUCT USED FOR UNKNOWN INDICATION
     Dosage: UNK UNK, QD (2.5)
     Route: 065

REACTIONS (5)
  - Blister [Unknown]
  - Product packaging difficult to open [Unknown]
  - Wound [Unknown]
  - Product use complaint [Unknown]
  - Wrong technique in product usage process [Unknown]
